FAERS Safety Report 16887148 (Version 2)
Quarter: 2020Q1

REPORT INFORMATION
  Report Type: Spontaneous
  Country: US (occurrence: US)
  Receive Date: 20191004
  Receipt Date: 20200108
  Transmission Date: 20200409
  Serious: No
  Sender: FDA-Public Use
  Company Number: US-BAUSCH-BL-2019-055688

PATIENT
  Age: 72 Year
  Sex: Female
  Weight: 61.29 kg

DRUGS (10)
  1. SYNTHROID [Concomitant]
     Active Substance: LEVOTHYROXINE SODIUM
     Indication: PRODUCT USED FOR UNKNOWN INDICATION
     Route: 048
  2. REMERON [Concomitant]
     Active Substance: MIRTAZAPINE
     Indication: PRODUCT USED FOR UNKNOWN INDICATION
     Route: 048
  3. FLAREX [Suspect]
     Active Substance: FLUOROMETHOLONE ACETATE
     Indication: PREOPERATIVE CARE
     Route: 047
     Dates: start: 201909, end: 201909
  4. LUCENTIS [Concomitant]
     Active Substance: RANIBIZUMAB
     Indication: PRODUCT USED FOR UNKNOWN INDICATION
     Dosage: AS DIRECTED
     Route: 031
  5. PRESERVISION AREDS 2 FORMULA SOFT GELS [Concomitant]
     Active Substance: MINERALS\VITAMINS
     Indication: PRODUCT USED FOR UNKNOWN INDICATION
     Route: 048
  6. LOTEMAX SM [Suspect]
     Active Substance: LOTEPREDNOL ETABONATE
     Indication: PRODUCT USE IN UNAPPROVED INDICATION
  7. LOTEMAX SM [Suspect]
     Active Substance: LOTEPREDNOL ETABONATE
     Indication: PREOPERATIVE CARE
     Route: 047
     Dates: start: 20190906, end: 20190907
  8. BESIVANCE [Suspect]
     Active Substance: BESIFLOXACIN
     Indication: PREOPERATIVE CARE
     Route: 047
     Dates: start: 20190906, end: 20190907
  9. BESIVANCE [Suspect]
     Active Substance: BESIFLOXACIN
     Indication: PRODUCT USE IN UNAPPROVED INDICATION
  10. ILEVRO [Suspect]
     Active Substance: NEPAFENAC
     Indication: PREOPERATIVE CARE
     Route: 047
     Dates: start: 20190906, end: 20190907

REACTIONS (9)
  - Blood pressure increased [Recovered/Resolved]
  - Hypoaesthesia [Recovering/Resolving]
  - Dizziness [Recovered/Resolved]
  - Bronchospasm [Recovering/Resolving]
  - Heart rate increased [Recovered/Resolved]
  - Asthenia [Recovered/Resolved]
  - Paraesthesia [Recovering/Resolving]
  - Palpitations [Recovering/Resolving]
  - Product use in unapproved indication [Unknown]

NARRATIVE: CASE EVENT DATE: 201909
